FAERS Safety Report 24239492 (Version 2)
Quarter: 2024Q4

REPORT INFORMATION
  Report Type: Spontaneous
  Country: US (occurrence: US)
  Receive Date: 20240822
  Receipt Date: 20241029
  Transmission Date: 20250114
  Serious: Yes (Hospitalization, Other)
  Sender: AVADEL CNS PHARMACEUTICALS, LLC
  Company Number: US-AVADEL CNS PHARMACEUTICALS, LLC-2024AVA01183

PATIENT
  Sex: Female

DRUGS (11)
  1. LUMRYZ [Suspect]
     Active Substance: SODIUM OXYBATE
     Indication: Narcolepsy
     Dosage: 6 G, ONCE NIGHTLY
     Route: 048
     Dates: start: 202406, end: 2024
  2. LUMRYZ [Suspect]
     Active Substance: SODIUM OXYBATE
     Indication: Cataplexy
  3. LUMRYZ [Suspect]
     Active Substance: SODIUM OXYBATE
     Indication: Narcolepsy
     Dosage: 7.5 G, ONCE NIGHTLY
     Route: 048
     Dates: start: 2024, end: 2024
  4. LUMRYZ [Suspect]
     Active Substance: SODIUM OXYBATE
     Indication: Cataplexy
  5. LUMRYZ [Suspect]
     Active Substance: SODIUM OXYBATE
     Indication: Narcolepsy
     Dosage: 9 G, ONCE NIGHTLY
     Route: 048
     Dates: start: 2024, end: 20241010
  6. LUMRYZ [Suspect]
     Active Substance: SODIUM OXYBATE
     Indication: Cataplexy
  7. GABAPENTIN [Concomitant]
     Active Substance: GABAPENTIN
     Dosage: UNK, EVERY MORNING
  8. ADDERALL [Concomitant]
     Active Substance: AMPHETAMINE ASPARTATE\AMPHETAMINE SULFATE\DEXTROAMPHETAMINE SACCHARATE\DEXTROAMPHETAMINE SULFATE
  9. PRISTIQ EXTENDED-RELEASE [Concomitant]
     Active Substance: DESVENLAFAXINE SUCCINATE
  10. CORLANOR [Concomitant]
     Active Substance: IVABRADINE HYDROCHLORIDE
  11. HYDROXYZINE [Concomitant]
     Active Substance: HYDROXYZINE HYDROCHLORIDE
     Dosage: 10 MG, AS NEEDED

REACTIONS (9)
  - Infection [Not Recovered/Not Resolved]
  - Abscess limb [Not Recovered/Not Resolved]
  - Limb injury [Not Recovered/Not Resolved]
  - Fall [Recovered/Resolved]
  - Nasopharyngitis [Not Recovered/Not Resolved]
  - Sedation [Unknown]
  - Somnolence [Unknown]
  - Nausea [Unknown]
  - Product administration interrupted [Not Recovered/Not Resolved]

NARRATIVE: CASE EVENT DATE: 20240101
